FAERS Safety Report 25785676 (Version 3)
Quarter: 2025Q4

REPORT INFORMATION
  Report Type: Spontaneous
  Country: GB (occurrence: GB)
  Receive Date: 20250910
  Receipt Date: 20251015
  Transmission Date: 20260117
  Serious: Yes (Other)
  Sender: MYLAN
  Company Number: GB-MYLANLABS-2025M1075877

PATIENT
  Sex: Female

DRUGS (7)
  1. LANSOPRAZOLE [Suspect]
     Active Substance: LANSOPRAZOLE
     Indication: Product used for unknown indication
     Dosage: UNK
  2. NAPROXEN [Suspect]
     Active Substance: NAPROXEN
     Indication: Product used for unknown indication
     Dosage: UNK
  3. LACTULOSE [Suspect]
     Active Substance: LACTULOSE
     Indication: Product used for unknown indication
     Dosage: UNK
  4. METHOTREXATE [Suspect]
     Active Substance: METHOTREXATE
     Indication: Product used for unknown indication
     Dosage: UNK
  5. ACETAMINOPHEN [Suspect]
     Active Substance: ACETAMINOPHEN
     Indication: Product used for unknown indication
     Dosage: UNK
  6. COCODAMOL [Suspect]
     Active Substance: ACETAMINOPHEN\CODEINE PHOSPHATE
     Indication: Product used for unknown indication
     Dosage: UNK
  7. SENOKOT [Suspect]
     Active Substance: SENNOSIDES
     Indication: Product used for unknown indication
     Dosage: UNK

REACTIONS (13)
  - Suicidal ideation [Unknown]
  - Blood pressure abnormal [Unknown]
  - Depression [Unknown]
  - Gastrooesophageal reflux disease [Unknown]
  - Impaired healing [Unknown]
  - Abdominal discomfort [Unknown]
  - Malaise [Unknown]
  - Abdominal distension [Unknown]
  - Diarrhoea [Unknown]
  - Bladder irritation [Unknown]
  - Dyspepsia [Unknown]
  - Constipation [Unknown]
  - Fatigue [Unknown]
